FAERS Safety Report 24251567 (Version 1)
Quarter: 2024Q3

REPORT INFORMATION
  Report Type: Report from Study
  Country: EG (occurrence: EG)
  Receive Date: 20240827
  Receipt Date: 20240827
  Transmission Date: 20241017
  Serious: Yes (Other)
  Sender: ABBVIE
  Company Number: EG-ABBVIE-5887736

PATIENT
  Age: 29 Year
  Sex: Male

DRUGS (7)
  1. HUMIRA [Suspect]
     Active Substance: ADALIMUMAB
     Indication: Crohn^s disease
     Dosage: FORM STRENGTH: 40MG??START DATE TEXT: 2015 / 2016
     Route: 058
     Dates: start: 2015, end: 2022
  2. HUMIRA [Suspect]
     Active Substance: ADALIMUMAB
     Route: 058
  3. HUMIRA [Suspect]
     Active Substance: ADALIMUMAB
     Route: 058
  4. RINVOQ [Suspect]
     Active Substance: UPADACITINIB
     Indication: Crohn^s disease
     Dosage: 2 TABLET?FORM STRENGTH: 15MG
     Route: 048
     Dates: start: 20240808
  5. RINVOQ [Suspect]
     Active Substance: UPADACITINIB
     Indication: Crohn^s disease
     Dosage: 2 TABLET?FORM STRENGTH: 15MG
     Route: 048
     Dates: start: 202312, end: 20240729
  6. RINVOQ [Suspect]
     Active Substance: UPADACITINIB
     Indication: Crohn^s disease
     Dosage: 3 TABLET?FORM STRENGTH: 15MG
     Route: 048
     Dates: start: 20240729, end: 20240808
  7. RINVOQ [Suspect]
     Active Substance: UPADACITINIB
     Indication: Crohn^s disease
     Dosage: 3 TABLET?FORM STRENGTH: 15MG
     Route: 048
     Dates: start: 202311, end: 202312

REACTIONS (7)
  - Intestinal obstruction [Not Recovered/Not Resolved]
  - Muscle spasms [Recovered/Resolved]
  - Psoriasis [Recovered/Resolved]
  - Abdominal pain [Recovered/Resolved]
  - Diarrhoea [Recovered/Resolved]
  - Tobacco user [Not Recovered/Not Resolved]
  - Gastrointestinal motility disorder [Recovered/Resolved]

NARRATIVE: CASE EVENT DATE: 20220101
